FAERS Safety Report 21635654 (Version 1)
Quarter: 2022Q4

REPORT INFORMATION
  Report Type: Spontaneous
  Country: DE (occurrence: DE)
  Receive Date: 20221123
  Receipt Date: 20221123
  Transmission Date: 20230112
  Serious: Yes (Death, Other)
  Sender: FDA-Public Use
  Company Number: DE-009507513-2210DEU010559

PATIENT
  Age: 59 Year
  Sex: Male

DRUGS (2)
  1. PEMBROLIZUMAB [Suspect]
     Active Substance: PEMBROLIZUMAB
     Indication: Metastatic salivary gland cancer
     Dosage: UNK
     Dates: start: 2021
  2. PIQRAY [Suspect]
     Active Substance: ALPELISIB
     Indication: Metastatic salivary gland cancer
     Dosage: UNK

REACTIONS (3)
  - Aspiration [Fatal]
  - Epilepsy [Fatal]
  - Drug ineffective [Unknown]

NARRATIVE: CASE EVENT DATE: 20220101
